FAERS Safety Report 10350951 (Version 1)
Quarter: 2014Q3

REPORT INFORMATION
  Report Type: Report from Study
  Country: MX (occurrence: MX)
  Receive Date: 20140730
  Receipt Date: 20140730
  Transmission Date: 20150326
  Serious: Yes (Death)
  Sender: FDA-Public Use
  Company Number: PHHY2014MX093245

PATIENT
  Age: 58 Year
  Sex: Male

DRUGS (2)
  1. GALVUS [Suspect]
     Active Substance: VILDAGLIPTIN
     Dosage: UNK UKN, UNK
  2. EXFORGE [Suspect]
     Active Substance: AMLODIPINE BESYLATE\VALSARTAN
     Indication: HYPERTENSION
     Dosage: 1 DF (160/ 5 MG), DAILY
     Route: 048
     Dates: start: 20131126

REACTIONS (1)
  - Death [Fatal]

NARRATIVE: CASE EVENT DATE: 20140712
